FAERS Safety Report 20566454 (Version 2)
Quarter: 2023Q1

REPORT INFORMATION
  Report Type: Report from Study
  Country: JP (occurrence: JP)
  Receive Date: 20220308
  Receipt Date: 20230123
  Transmission Date: 20230417
  Serious: Yes (Other)
  Sender: FDA-Public Use
  Company Number: JP-PFIZER INC-202200316943

PATIENT

DRUGS (1)
  1. RITUXIMAB [Suspect]
     Active Substance: RITUXIMAB
     Indication: Lupus nephritis
     Dosage: 375 MG/M2, WEEKLY (FOUR DOSES)

REACTIONS (5)
  - Pyrexia [Unknown]
  - Arthralgia [Unknown]
  - Chills [Unknown]
  - Oedema [Unknown]
  - Rash [Unknown]
